FAERS Safety Report 25930391 (Version 1)
Quarter: 2025Q4

REPORT INFORMATION
  Report Type: Spontaneous
  Country: US (occurrence: None)
  Receive Date: 20251015
  Receipt Date: 20251015
  Transmission Date: 20260118
  Serious: Yes (Other)
  Sender: FDA-CTU
  Company Number: None

PATIENT
  Age: 48 Year
  Sex: Female

DRUGS (3)
  1. CYANOCOBALAMIN\TOPIRAMATE [Suspect]
     Active Substance: CYANOCOBALAMIN\TOPIRAMATE
     Indication: Weight decreased
     Dosage: OTHER FREQUENCY : QOD;?
     Route: 048
     Dates: start: 20250925, end: 20251003
  2. ONDANSETRON [Suspect]
     Active Substance: ONDANSETRON
  3. ONDANSETRON [Suspect]
     Active Substance: ONDANSETRON

REACTIONS (1)
  - Angle closure glaucoma [None]

NARRATIVE: CASE EVENT DATE: 20251002
